FAERS Safety Report 6501320-7 (Version None)
Quarter: 2009Q4

REPORT INFORMATION
  Report Type: 
  Country: None (occurrence: None)
  Receive Date: 20091127
  Receipt Date: 20081010
  Transmission Date: 20100525
  Serious: Yes (Other)
  Sender: FDA-Public Use
  Company Number: WAES 0805USA00917

PATIENT
  Age: 76 Year
  Sex: Female

DRUGS (13)
  1. FOSAMAX [Suspect]
     Indication: OSTEOPENIA
     Dosage: 35 MG/WKY/PO  70 MG/ /PO
     Route: 048
     Dates: start: 20030101, end: 20070301
  2. FOSAMAX [Suspect]
     Indication: OSTEOPOROSIS PROPHYLAXIS
     Dosage: 35 MG/WKY/PO  70 MG/ /PO
     Route: 048
     Dates: start: 20030101, end: 20070301
  3. FOSAMAX [Suspect]
     Indication: OSTEOPENIA
     Dosage: 35 MG/WKY/PO  70 MG/ /PO
     Route: 048
     Dates: start: 20020124
  4. FOSAMAX [Suspect]
     Indication: OSTEOPOROSIS PROPHYLAXIS
     Dosage: 35 MG/WKY/PO  70 MG/ /PO
     Route: 048
     Dates: start: 20020124
  5. FOSAMAX PLUS D [Suspect]
     Indication: OSTEOPOROSIS PROPHYLAXIS
     Dosage: 70 MG/WKY/PO
     Route: 048
  6. ADVAIR DISKUS 100/50 [Concomitant]
  7. DIOVAN [Concomitant]
  8. LESCOL [Concomitant]
  9. PLAVIX [Concomitant]
  10. TOPROL-XL [Concomitant]
  11. [THERAPY UNSPECIFIED] [Concomitant]
  12. ALBUTEROL [Concomitant]
  13. HYDROCHLOROTHIAZIDE [Concomitant]

REACTIONS (18)
  - ARTHRITIS [None]
  - DENTAL CARIES [None]
  - DYSPEPSIA [None]
  - GASTRITIS [None]
  - GASTROOESOPHAGEAL REFLUX DISEASE [None]
  - HYPERKERATOSIS [None]
  - IMPAIRED HEALING [None]
  - LICHEN PLANUS [None]
  - ORAL HERPES [None]
  - ORAL INFECTION [None]
  - OROPHARYNGEAL CANDIDIASIS [None]
  - OSTEONECROSIS [None]
  - PAIN [None]
  - PAIN IN JAW [None]
  - PNEUMONIA [None]
  - PULPITIS DENTAL [None]
  - SKIN IRRITATION [None]
  - THYROID DISORDER [None]
